FAERS Safety Report 4267085-7 (Version None)
Quarter: 2004Q1

REPORT INFORMATION
  Report Type: 
  Country: None (occurrence: None)
  Receive Date: 20040107
  Receipt Date: 20031223
  Transmission Date: 20041129
  Serious: Yes (Other)
  Sender: FDA-Public Use
  Company Number: US-SHR-03-015153

PATIENT
  Age: 52 Year
  Sex: Female
  Weight: 65.8 kg

DRUGS (6)
  1. YASMIN [Suspect]
     Indication: MENOPAUSAL SYMPTOMS
     Dosage: 1 TAB(S), 1X/DAY, ORAL; 1 TAB(S), 1X/DAY, ORAL
     Route: 048
     Dates: start: 20030815, end: 20030902
  2. YASMIN [Suspect]
     Indication: NIGHT SWEATS
     Dosage: 1 TAB(S), 1X/DAY, ORAL; 1 TAB(S), 1X/DAY, ORAL
     Route: 048
     Dates: start: 20030815, end: 20030902
  3. YASMIN [Suspect]
     Indication: MENOPAUSAL SYMPTOMS
     Dosage: 1 TAB(S), 1X/DAY, ORAL; 1 TAB(S), 1X/DAY, ORAL
     Route: 048
     Dates: start: 20030909, end: 20030916
  4. YASMIN [Suspect]
     Indication: NIGHT SWEATS
     Dosage: 1 TAB(S), 1X/DAY, ORAL; 1 TAB(S), 1X/DAY, ORAL
     Route: 048
     Dates: start: 20030909, end: 20030916
  5. WELLBUTRIN [Concomitant]
  6. VIOXX  /USA/(ROFECOXIB) [Concomitant]

REACTIONS (5)
  - DYSPNOEA [None]
  - PHARMACEUTICAL PRODUCT COMPLAINT [None]
  - TACHYCARDIA [None]
  - THYROID FUNCTION TEST ABNORMAL [None]
  - VENTRICULAR EXTRASYSTOLES [None]
